FAERS Safety Report 20350997 (Version 2)
Quarter: 2022Q1

REPORT INFORMATION
  Report Type: Spontaneous
  Country: US (occurrence: US)
  Receive Date: 20220119
  Receipt Date: 20220204
  Transmission Date: 20220424
  Serious: No
  Sender: FDA-Public Use
  Company Number: US-TRIS PHARMA, INC.-22US010031

PATIENT

DRUGS (3)
  1. HYDROCODONE POLISTIREX AND CHLORPHENIRAMINE POLISTIREX [Suspect]
     Active Substance: CHLORPHENIRAMINE MALEATE\HYDROCODONE BITARTRATE
     Indication: Cough
     Dosage: SMALL AMOUNT, BID
     Route: 048
     Dates: start: 202201
  2. HYDROCODONE POLISTIREX AND CHLORPHENIRAMINE POLISTIREX [Suspect]
     Active Substance: CHLORPHENIRAMINE MALEATE\HYDROCODONE BITARTRATE
     Dosage: SMALL AMOUNT, BID
     Route: 048
     Dates: start: 2020, end: 20220105
  3. TUSSIONEX [CHLORPHENIRAMINE POLISTIREX;HYDROCODONE POLISTIREX] [Concomitant]
     Indication: Cough
     Dosage: UNK
     Dates: end: 2020

REACTIONS (1)
  - Product dose omission issue [Unknown]

NARRATIVE: CASE EVENT DATE: 20220105
